FAERS Safety Report 24777738 (Version 1)
Quarter: 2024Q4

REPORT INFORMATION
  Report Type: Spontaneous
  Country: US (occurrence: None)
  Receive Date: 20241224
  Receipt Date: 20241224
  Transmission Date: 20250115
  Serious: Yes (Death)
  Sender: Public
  Company Number: None

PATIENT
  Sex: Female

DRUGS (11)
  1. POMALYST [Suspect]
     Active Substance: POMALIDOMIDE
     Indication: Plasma cell myeloma
     Dosage: OTHER FREQUENCY : DAILYFOR21DAYSEVERY28CYCLE ;?
     Dates: start: 20241109
  2. ALBUTEROL AER HFA [Concomitant]
  3. COMBIVENT AER 20-100 [Concomitant]
  4. FAMOTIDINE TAB 40MG [Concomitant]
  5. FERROUS SULF TAB 325MG [Concomitant]
  6. FLUTICASONE [Concomitant]
     Active Substance: FLUTICASONE
  7. MUPIROCIN OIN 2^:Yo [Concomitant]
  8. POMALYST [Concomitant]
     Active Substance: POMALIDOMIDE
  9. TOLNAFTATE LIQ 1 % [Concomitant]
  10. TRELEGY AER 100MCG [Concomitant]
  11. TUMS CHW 500MG [Concomitant]

REACTIONS (1)
  - Death [None]
